FAERS Safety Report 5100717-X (Version None)
Quarter: 2006Q3

REPORT INFORMATION
  Report Type: 
  Country: None (occurrence: None)
  Receive Date: 20060731
  Receipt Date: 20060516
  Transmission Date: 20061208
  Serious: No
  Sender: FDA-Public Use
  Company Number: 2006PV014006

PATIENT
  Age: 48 Year
  Sex: Female
  Weight: 102.9665 kg

DRUGS (3)
  1. BYETTA [Suspect]
     Indication: DIABETES MELLITUS NON-INSULIN-DEPENDENT
     Dosage: 10 MCG;BID;SC; 5 MCB;BID;SC
     Route: 058
     Dates: start: 20060408, end: 20060508
  2. BYETTA [Suspect]
     Indication: DIABETES MELLITUS NON-INSULIN-DEPENDENT
     Dosage: 10 MCG;BID;SC; 5 MCB;BID;SC
     Route: 058
     Dates: start: 20060509
  3. METFORMIN HCL [Concomitant]

REACTIONS (5)
  - CHILLS [None]
  - FEELING HOT [None]
  - INJECTION SITE URTICARIA [None]
  - NAUSEA [None]
  - VOMITING [None]
